FAERS Safety Report 14375697 (Version 1)
Quarter: 2018Q1

REPORT INFORMATION
  Report Type: Spontaneous
  Country: US (occurrence: US)
  Receive Date: 20180111
  Receipt Date: 20180111
  Transmission Date: 20180509
  Serious: No
  Sender: FDA-Public Use
  Company Number: US-CELGENEUS-USA-20180102570

PATIENT
  Sex: Male

DRUGS (1)
  1. OTEZLA [Suspect]
     Active Substance: APREMILAST
     Indication: PSORIASIS
     Dosage: 60 MILLIGRAM
     Route: 048
     Dates: start: 20170519, end: 20170831

REACTIONS (4)
  - Asthenia [Unknown]
  - Gastrointestinal disorder [Unknown]
  - Depression [Unknown]
  - Decreased interest [Unknown]

NARRATIVE: CASE EVENT DATE: 2017
